FAERS Safety Report 24823392 (Version 1)
Quarter: 2025Q1

REPORT INFORMATION
  Report Type: Spontaneous
  Country: FR (occurrence: FR)
  Receive Date: 20250109
  Receipt Date: 20250109
  Transmission Date: 20250409
  Serious: Yes (Other)
  Sender: CHEPLAPHARM
  Company Number: None

PATIENT
  Age: 21 Year
  Sex: Male

DRUGS (3)
  1. OLANZAPINE [Suspect]
     Active Substance: OLANZAPINE
     Indication: Shared psychotic disorder
     Dosage: DAILY DOSE: 5 MILLIGRAM
     Route: 048
     Dates: start: 20241009
  2. FLUOXETINE [Concomitant]
     Active Substance: FLUOXETINE HYDROCHLORIDE
  3. OXAZEPAM [Concomitant]
     Active Substance: OXAZEPAM

REACTIONS (1)
  - Micturition urgency [Recovering/Resolving]

NARRATIVE: CASE EVENT DATE: 20241019
